FAERS Safety Report 8396489-6 (Version None)
Quarter: 2012Q2

REPORT INFORMATION
  Report Type: 
  Country: None (occurrence: None)
  Receive Date: 20120530
  Receipt Date: 20120523
  Transmission Date: 20120825
  Serious: Yes (Disabling, Other)
  Sender: FDA-Public Use
  Company Number: FR-ACTELION-A-CH2010-40493

PATIENT
  Sex: Female

DRUGS (5)
  1. ZAVESCA [Suspect]
     Dosage: 200 MG, BID
     Route: 048
     Dates: start: 20100921, end: 20110701
  2. ZAVESCA [Suspect]
     Indication: NIEMANN-PICK DISEASE
     Dosage: 300 MG, QD
     Route: 048
     Dates: start: 20100608, end: 20100920
  3. ZAVESCA [Suspect]
     Dosage: UNK
     Route: 048
     Dates: start: 20111001
  4. ZAVESCA [Suspect]
     Dosage: UNK
     Route: 048
     Dates: start: 20110801, end: 20110901
  5. ZAVESCA [Suspect]
     Dosage: 200 MG, BID
     Route: 048

REACTIONS (7)
  - GAIT DISTURBANCE [None]
  - URINARY INCONTINENCE [None]
  - WEIGHT DECREASED [None]
  - APHASIA [None]
  - DIARRHOEA [None]
  - NEUROLOGICAL DECOMPENSATION [None]
  - GROWTH RETARDATION [None]
